FAERS Safety Report 4418214-3 (Version None)
Quarter: 2004Q3

REPORT INFORMATION
  Report Type: 
  Country: None (occurrence: None)
  Receive Date: 20040809
  Receipt Date: 20040106
  Transmission Date: 20050211
  Serious: No
  Sender: FDA-Public Use
  Company Number: US-GLAXOSMITHKLINE-A0491730A

PATIENT
  Age: 48 Year
  Sex: Female

DRUGS (4)
  1. PAXIL [Suspect]
     Indication: DEPRESSION
     Dosage: 25MG PER DAY
     Route: 048
     Dates: start: 20031001
  2. RIBAVIRIN [Concomitant]
  3. INTERFERON [Concomitant]
  4. ORAL CONTRACEPTIVE [Concomitant]

REACTIONS (1)
  - INSOMNIA [None]
